FAERS Safety Report 7990821-0 (Version None)
Quarter: 2011Q4

REPORT INFORMATION
  Report Type: 
  Country: None (occurrence: None)
  Receive Date: 20111219
  Receipt Date: 20111201
  Transmission Date: 20120403
  Serious: Yes (Life-Threatening, Hospitalization)
  Sender: FDA-Public Use
  Company Number: US-ROCHE-1005438

PATIENT
  Sex: Male
  Weight: 59 kg

DRUGS (2)
  1. VEMURAFENIB [Suspect]
     Route: 048
     Dates: start: 20111025
  2. VEMURAFENIB [Suspect]
     Indication: METASTATIC MALIGNANT MELANOMA
     Dosage: LAST DOSE PRIOR TO SAE 30 AUG 2011
     Route: 048
     Dates: start: 20110811

REACTIONS (4)
  - PYREXIA [None]
  - LEUKOPENIA [None]
  - CHEST DISCOMFORT [None]
  - NEUTROPHIL COUNT ABNORMAL [None]
